FAERS Safety Report 10473758 (Version 1)
Quarter: 2014Q3

REPORT INFORMATION
  Report Type: Report from Study
  Country: BR (occurrence: BR)
  Receive Date: 20140924
  Receipt Date: 20140924
  Transmission Date: 20150326
  Serious: Yes (Other)
  Sender: FDA-Public Use
  Company Number: BR-ABBVIE-14K-020-1286459-00

PATIENT
  Age: 41 Year
  Sex: Female
  Weight: 92 kg

DRUGS (3)
  1. GYNERA [Concomitant]
     Active Substance: ETHINYL ESTRADIOL\GESTODENE
     Indication: CONTRACEPTION
     Route: 048
  2. HUMIRA [Suspect]
     Active Substance: ADALIMUMAB
     Indication: ANKYLOSING SPONDYLITIS
     Route: 058
     Dates: start: 20140202
  3. SERETIDE [Concomitant]
     Active Substance: FLUTICASONE FUROATE\SALMETEROL XINAFOATE
     Indication: ASTHMA
     Route: 048

REACTIONS (13)
  - Eye pain [Recovered/Resolved]
  - Injection site erythema [Unknown]
  - Malaise [Unknown]
  - Injection site haematoma [Recovering/Resolving]
  - Injection site pruritus [Recovering/Resolving]
  - Injection site haemorrhage [Recovering/Resolving]
  - Optic ischaemic neuropathy [Recovered/Resolved]
  - Arthralgia [Unknown]
  - Injection site hypersensitivity [Unknown]
  - Headache [Unknown]
  - Tongue discolouration [Recovering/Resolving]
  - Tongue haematoma [Unknown]
  - Blood pressure increased [Unknown]

NARRATIVE: CASE EVENT DATE: 2014
